FAERS Safety Report 5751222-9 (Version None)
Quarter: 2008Q2

REPORT INFORMATION
  Report Type: 
  Country: None (occurrence: None)
  Receive Date: 20080527
  Receipt Date: 20080221
  Transmission Date: 20081010
  Serious: Yes (Hospitalization)
  Sender: FDA-Public Use
  Company Number: WAES 0802USA05101

PATIENT
  Age: 50 Year
  Sex: Male
  Weight: 128.8216 kg

DRUGS (6)
  1. JANUVIA [Suspect]
     Indication: DIABETES MELLITUS
     Dosage: 100 MG/DAILY/PO
     Route: 048
     Dates: end: 20080124
  2. NEXIUM [Concomitant]
  3. TRICOR [Concomitant]
  4. ASPIRIN [Concomitant]
  5. LISINOPRIL [Concomitant]
  6. METFORMIN [Concomitant]

REACTIONS (1)
  - ABDOMINAL PAIN [None]
